FAERS Safety Report 8264152-8 (Version None)
Quarter: 2012Q2

REPORT INFORMATION
  Report Type: 
  Country: None (occurrence: None)
  Receive Date: 20120406
  Receipt Date: 20120324
  Transmission Date: 20120825
  Serious: Yes (Hospitalization, Other)
  Sender: FDA-Public Use
  Company Number: US-PAR PHARMACEUTICAL, INC-2012SCPR004300

PATIENT

DRUGS (12)
  1. SODIUM OXYBATE [Suspect]
     Dosage: 4.5 G IN DIVIDED DOSES, UNKNOWN
     Route: 065
  2. OXYCODONE HCL [Suspect]
     Dosage: 5-10 MG EVERY 4 HOURS AS NEEDED
     Route: 065
  3. LORAZEPAM [Suspect]
     Indication: HALLUCINATION
     Dosage: 1 MG, SINGLE
     Route: 048
  4. BUSPIRONE HCL [Concomitant]
     Indication: ANXIETY
     Dosage: UNK, UNKNOWN
     Route: 065
  5. SODIUM OXYBATE [Suspect]
     Dosage: TOTAL 5 G ON 4 DAYS PER WEEK
     Route: 065
  6. DIAZEPAM [Suspect]
     Indication: MUSCLE SPASMS
     Dosage: 2 MG THREE TIMES DAILY, AS NEEDED
     Route: 065
  7. SODIUM OXYBATE [Suspect]
     Dosage: 6 G, HS (IN DIVIDED DOSES)
     Route: 065
  8. SODIUM OXYBATE [Suspect]
     Dosage: MAXIMAL DOSE OF 7.5 G, UNKNOWN
     Route: 065
  9. LORAZEPAM [Suspect]
     Indication: DELUSION
  10. OXYCODONE HCL [Suspect]
     Indication: PAIN
     Dosage: 10 MG, BID
     Route: 065
  11. SODIUM OXYBATE [Suspect]
     Indication: NARCOLEPSY
     Dosage: 9 G, / DAY
     Route: 065
  12. SODIUM OXYBATE [Suspect]
     Dosage: 3 G IN DIVIDED DOSES, UNKNOWN
     Route: 065

REACTIONS (6)
  - HALLUCINATION [None]
  - PARAESTHESIA [None]
  - ANXIETY [None]
  - AGGRESSION [None]
  - PSYCHOTIC DISORDER [None]
  - DELUSION [None]
